FAERS Safety Report 7365849-4 (Version None)
Quarter: 2011Q1

REPORT INFORMATION
  Report Type: 
  Country: None (occurrence: None)
  Receive Date: 20110316
  Receipt Date: 20110316
  Transmission Date: 20110831
  Serious: No
  Sender: FDA-Public Use
  Company Number: None

PATIENT
  Sex: Male
  Weight: 99.7913 kg

DRUGS (1)
  1. LISINOPRIL [Suspect]
     Indication: HYPERTENSION
     Dosage: 1 TABLET 1 PER DAY PO
     Route: 048
     Dates: start: 20101220, end: 20110330

REACTIONS (5)
  - PRODUCT SUBSTITUTION ISSUE [None]
  - BLOOD PRESSURE INCREASED [None]
  - RECTAL DISCHARGE [None]
  - ANORECTAL DISCOMFORT [None]
  - ANAL PRURITUS [None]
